FAERS Safety Report 6721408-5 (Version None)
Quarter: 2010Q2

REPORT INFORMATION
  Report Type: 
  Country: None (occurrence: None)
  Receive Date: 20100512
  Receipt Date: 20100507
  Transmission Date: 20101027
  Serious: Yes (Other)
  Sender: FDA-Public Use
  Company Number: FR-BRISTOL-MYERS SQUIBB COMPANY-14973259

PATIENT
  Age: 50 Year
  Sex: Female

DRUGS (11)
  1. REYATAZ [Suspect]
     Indication: HIV INFECTION
     Dosage: 1/D TABS
     Route: 048
     Dates: start: 20060101
  2. NORVIR [Suspect]
     Indication: HIV INFECTION
     Route: 048
     Dates: start: 20060101
  3. SERETIDE [Suspect]
     Indication: CHRONIC OBSTRUCTIVE PULMONARY DISEASE
     Dosage: 1 DF=1 UNIT NOS SERETIDE DISKUS  ALSO GIVEN IN APR09
     Route: 055
     Dates: start: 20081101, end: 20100115
  4. BACTRIM [Concomitant]
     Indication: HIV INFECTION
  5. ZYPREXA [Concomitant]
  6. LARGACTIL [Concomitant]
  7. SUBUTEX [Concomitant]
     Dates: start: 19940101
  8. VENTOLIN [Concomitant]
  9. SPIRIVA [Concomitant]
     Indication: CHRONIC OBSTRUCTIVE PULMONARY DISEASE
  10. INNOVAR [Concomitant]
     Indication: CHRONIC OBSTRUCTIVE PULMONARY DISEASE
  11. TRUVADA [Concomitant]
     Indication: HIV INFECTION

REACTIONS (2)
  - ADRENAL INSUFFICIENCY [None]
  - CUSHING'S SYNDROME [None]
